FAERS Safety Report 16131445 (Version 1)
Quarter: 2019Q1

REPORT INFORMATION
  Report Type: Report from Study
  Country: None (occurrence: DO)
  Receive Date: 20190328
  Receipt Date: 20190328
  Transmission Date: 20190418
  Serious: Yes (Other)
  Sender: FDA-Public Use
  Company Number: DO-ABBVIE-19K-279-2722790-00

PATIENT
  Age: 34 Year
  Sex: Male
  Weight: 119.86 kg

DRUGS (1)
  1. HUMIRA [Suspect]
     Active Substance: ADALIMUMAB
     Indication: PSORIASIS
     Route: 058
     Dates: start: 20110701

REACTIONS (1)
  - Overweight [Not Recovered/Not Resolved]

NARRATIVE: CASE EVENT DATE: 20180420
